FAERS Safety Report 12777668 (Version 1)
Quarter: 2016Q3

REPORT INFORMATION
  Report Type: Spontaneous
  Country: BR (occurrence: BR)
  Receive Date: 20160924
  Receipt Date: 20160924
  Transmission Date: 20161109
  Serious: Yes (Hospitalization, Other)
  Sender: FDA-Public Use
  Company Number: BR-AMGEN-BRASP2016127525

PATIENT
  Age: 73 Year
  Sex: Female
  Weight: 60 kg

DRUGS (7)
  1. PROLIA [Suspect]
     Active Substance: DENOSUMAB
     Indication: OSTEOPOROSIS
     Dosage: 60 MG, Q6MO
     Route: 065
     Dates: start: 2015
  2. SOMALIUM [Concomitant]
     Active Substance: BROMAZEPAM
     Dosage: AT NIGHT SOMETIMES
  3. GABAPENTIN. [Concomitant]
     Active Substance: GABAPENTIN
     Dosage: 300 MG, QD
  4. INSULIN [Concomitant]
     Active Substance: INSULIN NOS
     Dosage: 100 UNK, QD
  5. GLUCOPHAGE [Concomitant]
     Active Substance: METFORMIN HYDROCHLORIDE
     Dosage: 500 UNK, QD
  6. CEPHALEXIN. [Concomitant]
     Active Substance: CEPHALEXIN
  7. VITAMIN D [Concomitant]
     Active Substance: CHOLECALCIFEROL

REACTIONS (5)
  - Wrist fracture [Unknown]
  - Fall [Unknown]
  - Upper limb fracture [Recovering/Resolving]
  - Vitamin D abnormal [Unknown]
  - Patient dissatisfaction with treatment [Unknown]

NARRATIVE: CASE EVENT DATE: 201510
